FAERS Safety Report 5490167-9 (Version None)
Quarter: 2007Q4

REPORT INFORMATION
  Report Type: 
  Country: None (occurrence: None)
  Receive Date: 20071018
  Receipt Date: 20071011
  Transmission Date: 20080405
  Serious: Yes (Hospitalization)
  Sender: FDA-Public Use
  Company Number: GB-BOEHRINGER INGELHEIM PHARMACEUTICALS, INC.-2007-UK-03205UK

PATIENT
  Age: 39 Year
  Sex: Female

DRUGS (3)
  1. VIRAMUNE [Suspect]
     Indication: HIV INFECTION
     Dosage: 200X 2 DAY
     Route: 048
  2. DIDANOSINE [Suspect]
  3. LIMOVUDINE [Suspect]

REACTIONS (5)
  - ABDOMINAL DISTENSION [None]
  - CONSTIPATION [None]
  - LACTASE DEFICIENCY [None]
  - MITOCHONDRIAL TOXICITY [None]
  - PORTAL VEIN THROMBOSIS [None]
